FAERS Safety Report 13756709 (Version 1)
Quarter: 2017Q3

REPORT INFORMATION
  Report Type: Spontaneous
  Country: CH (occurrence: CH)
  Receive Date: 20170714
  Receipt Date: 20170714
  Transmission Date: 20171127
  Serious: Yes (Hospitalization)
  Sender: FDA-Public Use
  Company Number: CH-MEDA-2017070002

PATIENT
  Age: 72 Year
  Sex: Male

DRUGS (15)
  1. PEMZEK 8 MG [Suspect]
     Active Substance: CANDESARTAN CILEXETIL
     Route: 048
  2. ASPIRIN CARDIO 100 [Concomitant]
     Active Substance: ASPIRIN
     Dosage: (1-0-0-0)
     Route: 048
  3. JANUMET 1000/50 MG [Concomitant]
     Dosage: (1-0-1-0)
     Route: 048
  4. TOREM 10 MG [Suspect]
     Active Substance: TORSEMIDE
     Route: 048
  5. CRESTOR 20 MG [Concomitant]
     Dosage: (1-0-0-0)
     Route: 048
  6. DAFALGAN 1000 MG [Concomitant]
  7. MOTILIUM [Concomitant]
     Active Substance: DOMPERIDONE
  8. BELOC ZOK 50 MG [Suspect]
     Active Substance: METOPROLOL SUCCINATE
  9. CALCIMAGON-D3 [Concomitant]
     Active Substance: CALCIUM\CHOLECALCIFEROL
     Dosage: (1-0-0-0)
  10. ACIDUM FOLICUM STREULI 5 MG [Concomitant]
     Dosage: (1-1-0-0)
     Route: 048
  11. NOVALGIN 500 MG [Concomitant]
  12. METAMUCIL 500 MG [Concomitant]
  13. JANUVIA [Concomitant]
     Active Substance: SITAGLIPTIN PHOSPHATE
     Dosage: (1-0-0-0)
     Route: 048
  14. SPIRICORT 5 MG [Concomitant]
     Active Substance: PREDNISOLONE
     Dosage: (1-0-0-0)
     Route: 048
  15. NITROLINGUAL 0.4 MG [Concomitant]

REACTIONS (3)
  - Dyspnoea [Not Recovered/Not Resolved]
  - Syncope [Recovered/Resolved]
  - Asthenia [Not Recovered/Not Resolved]

NARRATIVE: CASE EVENT DATE: 201611
